FAERS Safety Report 5937571-X (Version None)
Quarter: 2008Q4

REPORT INFORMATION
  Report Type: 
  Country: None (occurrence: None)
  Receive Date: 20081029
  Receipt Date: 20081013
  Transmission Date: 20090506
  Serious: Yes (Hospitalization)
  Sender: FDA-Public Use
  Company Number: 2008S1010650

PATIENT
  Age: 69 Year
  Sex: Female

DRUGS (5)
  1. PHOSPHOSODA FLAVOR NOT SPECIFIED (SODIUM PHOSPHATE DIBASIC/SODIUM PHOS [Suspect]
     Indication: COLONOSCOPY
     Dosage: PO
     Route: 048
     Dates: start: 20080414
  2. CARBIMAZOL (BEING QUERIED) [Concomitant]
  3. NEBIVOLOL HCL [Concomitant]
  4. OMEPRAZOL (BEING QUERIED) [Concomitant]
  5. DICLAC (DICLOFENAC SODIUM) [Concomitant]

REACTIONS (2)
  - C-REACTIVE PROTEIN INCREASED [None]
  - DIARRHOEA [None]
